FAERS Safety Report 21310132 (Version 1)
Quarter: 2022Q3

REPORT INFORMATION
  Report Type: Report from Study
  Country: US (occurrence: US)
  Receive Date: 20220909
  Receipt Date: 20220909
  Transmission Date: 20221027
  Serious: Yes (Hospitalization, Other)
  Sender: FDA-Public Use
  Company Number: US-BIOVITRUM-2022US07856

PATIENT
  Age: 7 Year
  Sex: Female

DRUGS (1)
  1. ORFADIN [Suspect]
     Active Substance: NITISINONE
     Indication: Amino acid metabolism disorder
     Dates: start: 20140516

REACTIONS (9)
  - Abdominal pain [Recovering/Resolving]
  - Nephrolithiasis [Recovering/Resolving]
  - Cholelithiasis [Recovering/Resolving]
  - Large intestinal obstruction [Recovering/Resolving]
  - Blood sodium decreased [Recovering/Resolving]
  - Cholelithiasis [Unknown]
  - Gastrointestinal wall thickening [Unknown]
  - Inappropriate antidiuretic hormone secretion [Unknown]
  - Off label use [Unknown]

NARRATIVE: CASE EVENT DATE: 20140516
